FAERS Safety Report 6562913-4 (Version None)
Quarter: 2010Q1

REPORT INFORMATION
  Report Type: 
  Country: None (occurrence: None)
  Receive Date: 20100130
  Receipt Date: 20091123
  Transmission Date: 20100710
  Serious: No
  Sender: FDA-Public Use
  Company Number: US-ABBOTT-09P-163-0611432-00

PATIENT
  Sex: Female
  Weight: 136.2 kg

DRUGS (7)
  1. HUMIRA [Suspect]
     Indication: PSORIATIC ARTHROPATHY
     Route: 058
  2. HUMIRA [Suspect]
     Indication: PSORIASIS
  3. LEVOTHYROXINE SODIUM [Concomitant]
     Indication: THYROID DISORDER
  4. LISINOPRIL [Concomitant]
     Indication: HYPERTENSION
  5. BENICAR [Concomitant]
     Indication: HYPERTENSION
  6. AMITRIPTYLINE HCL [Concomitant]
     Indication: DRUG USE FOR UNKNOWN INDICATION
  7. AMBIEN CR [Concomitant]
     Indication: DRUG USE FOR UNKNOWN INDICATION

REACTIONS (4)
  - HAEMORRHAGE [None]
  - PSORIASIS [None]
  - RASH MACULAR [None]
  - SKIN EXFOLIATION [None]
